FAERS Safety Report 9471211 (Version 1)
Quarter: 2013Q3

REPORT INFORMATION
  Report Type: Not Available
  Country: US (occurrence: US)
  Receive Date: 20130822
  Receipt Date: 20130822
  Transmission Date: 20140515
  Serious: No
  Sender: FDA-Public Use
  Company Number: US-TARO-2012P1059608

PATIENT
  Sex: Male

DRUGS (1)
  1. TERBINAFINE HCL CREAM 1% (ATHLETES FOOT) [Suspect]
     Dates: start: 20120701, end: 20120903

REACTIONS (1)
  - Drug ineffective [Not Recovered/Not Resolved]
